FAERS Safety Report 6945400 (Version 3)
Quarter: 2013Q3

REPORT INFORMATION
  Report Type: Report from Study
  Country: BE (occurrence: BE)
  Receive Date: 20090319
  Receipt Date: 20130830
  Transmission Date: 20140515
  Serious: Yes (Death, Other)
  Sender: FDA-Public Use
  Company Number: BE-CELGENEUS-013-21880-09030777

PATIENT
  Age: 77 Year
  Sex: Female
  Weight: 57 kg

DRUGS (8)
  1. REVLIMID [Suspect]
     Indication: 5Q MINUS SYNDROME
     Dosage: 10 MILLIGRAM
     Route: 048
     Dates: start: 20090212, end: 20090223
  2. DARBEPOETIN [Concomitant]
     Indication: 5Q MINUS SYNDROME
     Route: 065
     Dates: start: 200807
  3. DARBEPOETIN [Concomitant]
     Route: 065
  4. COVERSYL [Concomitant]
     Indication: HYPERTENSION
     Route: 065
     Dates: start: 2006
  5. SINEQUAN [Concomitant]
     Indication: DEPRESSION
     Route: 065
     Dates: start: 200805
  6. SOLTAN [Concomitant]
     Indication: DEPRESSION
     Route: 065
     Dates: start: 200805
  7. RED BLOOD CELLS [Concomitant]
     Indication: PRODUCT USED FOR UNKNOWN INDICATION
     Route: 065
  8. RED BLOOD CELLS [Concomitant]
     Route: 065

REACTIONS (4)
  - Pulmonary sepsis [Fatal]
  - Hepatic failure [Fatal]
  - Cardiac failure [Fatal]
  - Dermatitis exfoliative [Recovered/Resolved]
